FAERS Safety Report 9266633 (Version 1)
Quarter: 2013Q2

REPORT INFORMATION
  Report Type: Spontaneous
  Country: US (occurrence: US)
  Receive Date: 20130502
  Receipt Date: 20130502
  Transmission Date: 20140414
  Serious: Yes (Hospitalization)
  Sender: FDA-Public Use
  Company Number: US-BAYER-2013-053283

PATIENT
  Age: 35 Year
  Sex: Female

DRUGS (3)
  1. YASMIN [Suspect]
     Dosage: UNK
     Dates: start: 20100607
  2. ALBUTEROL [Concomitant]
     Indication: DYSPNOEA
     Dosage: 1 PUFF(S), Q4HR
  3. METFORMIN [Concomitant]

REACTIONS (3)
  - Pulmonary embolism [None]
  - Atelectasis [None]
  - Respiratory disorder [None]
